FAERS Safety Report 16468073 (Version 2)
Quarter: 2019Q3

REPORT INFORMATION
  Report Type: Spontaneous
  Country: US (occurrence: US)
  Receive Date: 20190624
  Receipt Date: 20190919
  Transmission Date: 20191004
  Serious: No
  Sender: FDA-Public Use
  Company Number: US-009507513-1906USA007468

PATIENT

DRUGS (4)
  1. NATALIZUMAB [Concomitant]
     Active Substance: NATALIZUMAB
     Indication: PROGRESSIVE MULTIFOCAL LEUKOENCEPHALOPATHY
     Dosage: UNK
  2. FILGRASTIM [Concomitant]
     Active Substance: FILGRASTIM
     Indication: IMMUNE RECONSTITUTION INFLAMMATORY SYNDROME
  3. REMERON [Suspect]
     Active Substance: MIRTAZAPINE
     Indication: JC VIRUS INFECTION
     Dosage: 15-30 MG PO DAILY
     Route: 048
  4. FILGRASTIM [Concomitant]
     Active Substance: FILGRASTIM
     Indication: JC VIRUS INFECTION
     Dosage: DAILY FILGRASTIM 5 MCG/KG
     Route: 058

REACTIONS (1)
  - Product use in unapproved indication [Unknown]
